FAERS Safety Report 9086614 (Version 1)
Quarter: 2013Q1

REPORT INFORMATION
  Report Type: Spontaneous
  Country: MX (occurrence: MX)
  Receive Date: 20130131
  Receipt Date: 20130131
  Transmission Date: 20140127
  Serious: Yes (Death)
  Sender: FDA-Public Use
  Company Number: MX-PFIZER INC-2013040656

PATIENT
  Age: 61 Year
  Sex: Female

DRUGS (1)
  1. NORVAS [Suspect]
     Indication: HYPERTENSION
     Route: 048

REACTIONS (1)
  - Death [Fatal]
